FAERS Safety Report 15881123 (Version 2)
Quarter: 2019Q1

REPORT INFORMATION
  Report Type: Spontaneous
  Country: ES (occurrence: ES)
  Receive Date: 20190128
  Receipt Date: 20190204
  Transmission Date: 20190417
  Serious: Yes (Hospitalization, Other)
  Sender: FDA-Public Use
  Company Number: ES-SAKK-2019SA021889AA

PATIENT
  Age: 39 Year
  Sex: Female

DRUGS (4)
  1. LEMTRADA [Suspect]
     Active Substance: ALEMTUZUMAB
     Indication: RELAPSING-REMITTING MULTIPLE SCLEROSIS
     Dosage: UNK UNK, UNK
     Route: 041
     Dates: start: 201604, end: 201604
  2. RITUXIMAB. [Suspect]
     Active Substance: RITUXIMAB
     Dosage: 1 G, QD
     Route: 065
     Dates: start: 20180611, end: 20180611
  3. LEMTRADA [Suspect]
     Active Substance: ALEMTUZUMAB
     Dosage: UNK, UNK
     Route: 041
     Dates: start: 201705, end: 201705
  4. RITUXIMAB. [Suspect]
     Active Substance: RITUXIMAB
     Dosage: 1 G, QD
     Route: 065
     Dates: start: 20180625, end: 20180625

REACTIONS (15)
  - Haemoglobin decreased [Unknown]
  - Lymphocyte count decreased [Unknown]
  - Systemic inflammatory response syndrome [Recovering/Resolving]
  - White blood cell count decreased [Unknown]
  - Red cell distribution width decreased [Unknown]
  - Monocyte count decreased [Unknown]
  - Pancytopenia [Unknown]
  - Neutrophil count decreased [Unknown]
  - Blood immunoglobulin G decreased [Unknown]
  - Blood immunoglobulin M decreased [Unknown]
  - Platelet count decreased [Unknown]
  - C-reactive protein decreased [Unknown]
  - Blood immunoglobulin A decreased [Unknown]
  - Colitis [Recovering/Resolving]
  - Pneumonitis [Recovering/Resolving]

NARRATIVE: CASE EVENT DATE: 20181120
